FAERS Safety Report 5149490-X (Version None)
Quarter: 2006Q4

REPORT INFORMATION
  Report Type: 
  Country: None (occurrence: None)
  Receive Date: 20061113
  Receipt Date: 20060208
  Transmission Date: 20070319
  Serious: No
  Sender: FDA-Public Use
  Company Number: 436264

PATIENT
  Sex: Female

DRUGS (4)
  1. COREG [Suspect]
     Indication: HYPERTENSION
     Dosage: 25MG TWICE PER DAY
     Route: 048
  2. DIOVAN [Concomitant]
  3. SULAR [Concomitant]
  4. LASIX [Concomitant]

REACTIONS (3)
  - INFLUENZA [None]
  - LABILE BLOOD PRESSURE [None]
  - STRESS [None]
